FAERS Safety Report 23222309 (Version 4)
Quarter: 2024Q1

REPORT INFORMATION
  Report Type: Spontaneous
  Country: US (occurrence: US)
  Receive Date: 20231123
  Receipt Date: 20240318
  Transmission Date: 20240409
  Serious: Yes (Hospitalization, Other)
  Sender: FDA-Public Use
  Company Number: US-PFIZER INC-202300392976

PATIENT
  Age: 81 Year
  Sex: Female

DRUGS (2)
  1. GENOTROPIN [Suspect]
     Active Substance: SOMATROPIN
     Dosage: 0.3 MG, DAILY
  2. GENOTROPIN [Suspect]
     Active Substance: SOMATROPIN
     Dosage: 0.3 MG, 6 DAYS/WEEK

REACTIONS (4)
  - Cerebrovascular accident [Unknown]
  - Expired device used [Unknown]
  - Drug dose omission by device [Unknown]
  - Feeling abnormal [Unknown]
